FAERS Safety Report 7164425-6 (Version None)
Quarter: 2010Q4

REPORT INFORMATION
  Report Type: 
  Country: None (occurrence: None)
  Receive Date: 20101215
  Receipt Date: 20101208
  Transmission Date: 20110411
  Serious: Yes (Other)
  Sender: FDA-Public Use
  Company Number: DE-TEVA-259022GER

PATIENT
  Age: 82 Year
  Sex: Female

DRUGS (1)
  1. CLINDAMYCIN (CLINDAMYCIN ABZ) [Suspect]
     Route: 048

REACTIONS (5)
  - CARDIAC FLUTTER [None]
  - CARDIOVASCULAR INSUFFICIENCY [None]
  - DIARRHOEA [None]
  - GAIT DISTURBANCE [None]
  - RESTLESSNESS [None]
